FAERS Safety Report 23205617 (Version 6)
Quarter: 2024Q1

REPORT INFORMATION
  Report Type: Spontaneous
  Country: JP (occurrence: None)
  Receive Date: 20231120
  Receipt Date: 20240214
  Transmission Date: 20240409
  Serious: Yes (Death, Hospitalization, Other)
  Sender: FDA-Public Use
  Company Number: 2023A262047

PATIENT
  Age: 66 Year
  Sex: Male
  Weight: 68 kg

DRUGS (14)
  1. IMFINZI [Suspect]
     Active Substance: DURVALUMAB
     Indication: Hepatocellular carcinoma
     Route: 041
     Dates: start: 20231010, end: 20231010
  2. IMJUDO [Suspect]
     Active Substance: TREMELIMUMAB\TREMELIMUMAB-ACTL
     Indication: Hepatocellular carcinoma
     Dosage: 300.0MG UNKNOWN
     Route: 041
     Dates: start: 20231010, end: 20231010
  3. TOLVAPTAN OD [Concomitant]
     Indication: Ascites
     Route: 048
     Dates: start: 20220124, end: 20231112
  4. FUROSEMIDE [Concomitant]
     Active Substance: FUROSEMIDE
     Indication: Ascites
     Route: 048
     Dates: end: 20231112
  5. ESOMEPRAZOLE [Concomitant]
     Active Substance: ESOMEPRAZOLE
     Indication: Varices oesophageal
     Route: 048
     Dates: end: 20231111
  6. SITAGLIPTIN [Concomitant]
     Active Substance: SITAGLIPTIN
     Indication: Type 2 diabetes mellitus
     Route: 048
     Dates: start: 20230317, end: 20231112
  7. JARDIANCE [Concomitant]
     Active Substance: EMPAGLIFLOZIN
     Indication: Type 2 diabetes mellitus
     Route: 048
     Dates: start: 20220125, end: 20231112
  8. CODEINE PHOSPHATE [Concomitant]
     Active Substance: CODEINE PHOSPHATE
     Indication: Metastases to lung
     Route: 048
     Dates: start: 20230905, end: 20231112
  9. CARBOCYSTEINE [Concomitant]
     Active Substance: CARBOCYSTEINE
     Indication: Metastases to lung
     Route: 048
     Dates: start: 20230905, end: 20231112
  10. TULOBUTEROL:TAPE HISAMITSU [Concomitant]
     Route: 062
  11. CALONAL [Concomitant]
     Active Substance: ACETAMINOPHEN
     Route: 048
     Dates: start: 20231017
  12. MIYA-BM [Concomitant]
     Active Substance: CLOSTRIDIUM BUTYRICUM SPORES STRAIN M-55
     Route: 048
  13. RAMELTEON [Concomitant]
     Active Substance: RAMELTEON
     Route: 048
  14. RINDERON V [Concomitant]
     Active Substance: BETAMETHASONE VALERATE
     Route: 062

REACTIONS (5)
  - Interstitial lung disease [Fatal]
  - Pneumonia bacterial [Unknown]
  - Multiple organ dysfunction syndrome [Unknown]
  - Lymphangiosis carcinomatosa [Unknown]
  - Renal disorder [Unknown]

NARRATIVE: CASE EVENT DATE: 20231024
